FAERS Safety Report 7981138-9 (Version None)
Quarter: 2011Q4

REPORT INFORMATION
  Report Type: 
  Country: None (occurrence: None)
  Receive Date: 20111212
  Receipt Date: 20111130
  Transmission Date: 20120403
  Serious: Yes (Hospitalization)
  Sender: FDA-Public Use
  Company Number: 2011SP049986

PATIENT
  Age: 18 Year
  Sex: Female
  Weight: 58 kg

DRUGS (2)
  1. IMPLANON [Suspect]
  2. IMPLANON [Suspect]
     Indication: PRODUCT USED FOR UNKNOWN INDICATION
     Dosage: 1 DF
     Dates: start: 20090604, end: 20111024

REACTIONS (4)
  - ABORTION SPONTANEOUS [None]
  - PRODUCT QUALITY ISSUE [None]
  - MATERNAL DRUGS AFFECTING FOETUS [None]
  - PREGNANCY WITH IMPLANT CONTRACEPTIVE [None]
